FAERS Safety Report 5321085-4 (Version None)
Quarter: 2007Q1

REPORT INFORMATION
  Report Type: 
  Country: None (occurrence: None)
  Receive Date: 20070215
  Receipt Date: 20061201
  Transmission Date: 20070707
  Serious: No
  Sender: FDA-Public Use
  Company Number: 200616827BWH

PATIENT
  Sex: Female

DRUGS (4)
  1. NEXAVAR [Suspect]
     Indication: RENAL CELL CARCINOMA STAGE UNSPECIFIED
     Dosage: BID, ORAL
     Route: 048
     Dates: start: 20061121
  2. PAIN PATCH [Concomitant]
  3. OXYCODONE HCL [Concomitant]
  4. LASIX [Concomitant]

REACTIONS (2)
  - BLISTER [None]
  - DECREASED APPETITE [None]
